FAERS Safety Report 4623163-1 (Version None)
Quarter: 2005Q1

REPORT INFORMATION
  Report Type: 
  Country: None (occurrence: None)
  Receive Date: 20050329
  Receipt Date: 20050322
  Transmission Date: 20050727
  Serious: Yes (Hospitalization)
  Sender: FDA-Public Use
  Company Number: 2005AP00255

PATIENT
  Age: 83 Year
  Sex: Male
  Weight: 45 kg

DRUGS (10)
  1. ZOLADEX [Suspect]
     Indication: PROSTATE CANCER
     Dosage: 10.8 MG Q3MO SQ
     Dates: start: 20031121
  2. ZOLADEX [Suspect]
     Indication: PROSTATE CANCER
     Dosage: 10.8 MG Q3MO SQ
     Dates: start: 20050209
  3. BUP-4 [Concomitant]
  4. CARDENALIN [Concomitant]
  5. NARCARICIN [Concomitant]
  6. AMARYL [Concomitant]
  7. HALCION [Concomitant]
  8. ALFAROL [Concomitant]
  9. SELBEX [Concomitant]
  10. LOXONIN [Concomitant]

REACTIONS (3)
  - BLOOD IMMUNOGLOBULIN E INCREASED [None]
  - EOSINOPHILIC PNEUMONIA CHRONIC [None]
  - RENAL FAILURE [None]
